FAERS Safety Report 5160663-2 (Version None)
Quarter: 2006Q4

REPORT INFORMATION
  Report Type: 
  Country: None (occurrence: None)
  Receive Date: 20061121
  Receipt Date: 20061110
  Transmission Date: 20070319
  Serious: Yes (Hospitalization)
  Sender: FDA-Public Use
  Company Number: 2006SP004003

PATIENT
  Age: 78 Year
  Sex: Female

DRUGS (11)
  1. XOPENEX [Suspect]
     Indication: BRONCHITIS
     Dosage: 1.25 MG/3ML; 1X; INHALATION
     Route: 055
     Dates: start: 20061109, end: 20061109
  2. XOPENEX [Suspect]
     Indication: NASOPHARYNGITIS
     Dosage: 1.25 MG/3ML; 1X; INHALATION
     Route: 055
     Dates: start: 20061109, end: 20061109
  3. ACETYLSALICYLIC ACID SRT [Concomitant]
  4. ALTACE [Concomitant]
  5. PLAVIX [Concomitant]
  6. PANTOPRAZOLE SODIUM [Concomitant]
  7. VITAMIN B-12 [Concomitant]
  8. LEVOTHYROXINE SODIUM [Concomitant]
  9. ACETAMINOPHEN W/PROPOXYPHENE [Concomitant]
  10. AMBIEN [Concomitant]
  11. LORAZEPAM [Concomitant]

REACTIONS (2)
  - DYSPNOEA [None]
  - STRIDOR [None]
